FAERS Safety Report 9324385 (Version 1)
Quarter: 2013Q2

REPORT INFORMATION
  Report Type: Spontaneous
  Country: US (occurrence: US)
  Receive Date: 20130603
  Receipt Date: 20130603
  Transmission Date: 20140414
  Serious: Yes (Other)
  Sender: FDA-Public Use
  Company Number: US-ELI_LILLY_AND_COMPANY-US201305006779

PATIENT
  Age: 61 Year
  Sex: Female

DRUGS (12)
  1. CYMBALTA [Suspect]
     Indication: FIBROMYALGIA
     Dosage: 120 MG, QD
     Dates: end: 20130507
  2. CYMBALTA [Suspect]
     Dosage: 60 MG, BID
  3. CELEBREX [Concomitant]
  4. FLEXERIL [Concomitant]
  5. ATIVAN [Concomitant]
  6. SPIRONOLACTONE [Concomitant]
  7. POTASSIUM [Concomitant]
     Dosage: UNK, TID
  8. LEVOTHYROXINE [Concomitant]
     Dosage: 100 MG, QD
  9. HYDROCODONE [Concomitant]
     Dosage: UNK, PRN
  10. ESTRADIOL [Concomitant]
     Dosage: 2 MG, UNK
  11. SKELAXIN [Concomitant]
  12. BUSPIRONE [Concomitant]
     Dosage: 150 MG, UNK

REACTIONS (10)
  - Dermatitis allergic [Unknown]
  - Balance disorder [Unknown]
  - Thinking abnormal [Unknown]
  - Eating disorder [Unknown]
  - Bradyphrenia [Unknown]
  - Decreased interest [Unknown]
  - Insomnia [Unknown]
  - Dizziness postural [Unknown]
  - Decreased appetite [Unknown]
  - Drug ineffective [Unknown]
